FAERS Safety Report 7356669-5 (Version None)
Quarter: 2011Q1

REPORT INFORMATION
  Report Type: 
  Country: None (occurrence: None)
  Receive Date: 20110316
  Receipt Date: 20110310
  Transmission Date: 20110831
  Serious: Yes (Death, Other)
  Sender: FDA-Public Use
  Company Number: PHHY2011US16911

PATIENT
  Sex: Male

DRUGS (15)
  1. LASIX [Concomitant]
     Dosage: 40 MG, QD
  2. POTASSIUM CHLORATE [Concomitant]
     Dosage: 20 MG, DAILY
     Route: 048
  3. TESSALON [Concomitant]
     Dosage: 100 MG, PRN
     Route: 048
  4. EXJADE [Suspect]
     Indication: NEOPLASM
     Dosage: 500 MG, QID
     Route: 048
     Dates: start: 20091210, end: 20101104
  5. ALLOPURINOL [Concomitant]
     Dosage: 300 MG, DAILY
     Route: 048
  6. MIDODRINE HYDROCHLORIDE [Concomitant]
     Dosage: 10 MG, TID
     Route: 048
  7. RESTORIL [Concomitant]
     Dosage: 15 MG, PRN
     Route: 048
  8. MORPHINE SULDATE [Concomitant]
     Dosage: 30 MG, Q12H
  9. AMIODARONE HCL [Concomitant]
     Dosage: 200 MG, TID
  10. PREDNESOL [Concomitant]
     Dosage: 20 MG, QD
  11. GLIPIZIDE [Concomitant]
     Dosage: 5 MG, DAILY
     Route: 048
  12. NITROSTAT [Concomitant]
     Dosage: 0.3 MG, UNK
  13. IPRATROPIUM BROMIDE [Concomitant]
  14. PRILOSEC [Concomitant]
     Dosage: 20 MG, QD
     Route: 048
  15. DOCUSATE SODIUM [Concomitant]
     Dosage: 50 MG, BID

REACTIONS (3)
  - LOSS OF CONSCIOUSNESS [None]
  - DEATH [None]
  - CIRCULATORY COLLAPSE [None]
